FAERS Safety Report 8042833-9 (Version None)
Quarter: 2012Q1

REPORT INFORMATION
  Report Type: 
  Country: None (occurrence: None)
  Receive Date: 20120112
  Receipt Date: 20120103
  Transmission Date: 20120608
  Serious: Yes (Hospitalization)
  Sender: FDA-Public Use
  Company Number: US-UCBSA-047737

PATIENT
  Age: 17 Year
  Sex: Female
  Weight: 56.06 kg

DRUGS (1)
  1. CIMZIA [Suspect]
     Indication: CROHN'S DISEASE
     Route: 058
     Dates: start: 20101007

REACTIONS (4)
  - STOMATITIS [None]
  - DIARRHOEA [None]
  - UVEITIS [None]
  - DRUG INEFFECTIVE [None]
